FAERS Safety Report 10094707 (Version 1)
Quarter: 2014Q2

REPORT INFORMATION
  Report Type: Spontaneous
  Country: US (occurrence: None)
  Receive Date: 20140421
  Receipt Date: 20140421
  Transmission Date: 20141212
  Serious: Yes (Life-Threatening, Hospitalization)
  Sender: FDA-Public Use
  Company Number: None

PATIENT
  Sex: 0

DRUGS (1)
  1. WARFARIN [Suspect]
     Indication: INCORRECT DOSE ADMINISTERED
     Dates: start: 20131227

REACTIONS (1)
  - Drug level increased [None]
